FAERS Safety Report 25611965 (Version 1)
Quarter: 2025Q3

REPORT INFORMATION
  Report Type: Spontaneous
  Country: EU (occurrence: EU)
  Receive Date: 20250728
  Receipt Date: 20250728
  Transmission Date: 20251021
  Serious: Yes (Hospitalization)
  Sender: TORRENT PHARMA INC.
  Company Number: None

PATIENT
  Age: 69 Year
  Sex: Female

DRUGS (2)
  1. LEVOFLOXACIN [Suspect]
     Active Substance: LEVOFLOXACIN
     Indication: Pneumonia
     Route: 048
  2. PREDNISOLONE [Concomitant]
     Active Substance: PREDNISOLONE
     Indication: Chronic obstructive pulmonary disease
     Route: 048

REACTIONS (3)
  - Pain in extremity [Unknown]
  - Tendon rupture [Unknown]
  - Tenosynovitis [Unknown]

NARRATIVE: CASE EVENT DATE: 20250630
